FAERS Safety Report 11135541 (Version 1)
Quarter: 2015Q2

REPORT INFORMATION
  Report Type: Spontaneous
  Country: US (occurrence: None)
  Receive Date: 20150522
  Receipt Date: 20150522
  Transmission Date: 20150821
  Serious: No
  Sender: FDA-Public Use
  Company Number: None

PATIENT
  Age: 74 Year
  Sex: Male

DRUGS (1)
  1. CAPECITABINE 500MG TEVA [Suspect]
     Active Substance: CAPECITABINE
     Indication: MALIGNANT NEOPLASM OF PLEURA
     Dosage: 500MG 5T;PO;BID PO
     Route: 048
     Dates: start: 20150227, end: 20150511

REACTIONS (1)
  - Rash [None]

NARRATIVE: CASE EVENT DATE: 20150516
